FAERS Safety Report 24630861 (Version 1)
Quarter: 2024Q4

REPORT INFORMATION
  Report Type: Spontaneous
  Country: US (occurrence: US)
  Receive Date: 20241118
  Receipt Date: 20241118
  Transmission Date: 20250115
  Serious: No
  Sender: PAREXEL
  Company Number: US-SECURA BIO, INC.-2024-SECUR-US000071

PATIENT

DRUGS (1)
  1. COPIKTRA [Suspect]
     Active Substance: DUVELISIB
     Indication: Anaplastic large cell lymphoma T- and null-cell types
     Dosage: 3 CAPSULES, BID
     Route: 048
     Dates: start: 202405

REACTIONS (1)
  - Lung disorder [Unknown]

NARRATIVE: CASE EVENT DATE: 20240101
